FAERS Safety Report 19589003 (Version 1)
Quarter: 2021Q3

REPORT INFORMATION
  Report Type: Spontaneous
  Country: US (occurrence: US)
  Receive Date: 20210721
  Receipt Date: 20210721
  Transmission Date: 20211014
  Serious: Yes (Death)
  Sender: FDA-Public Use
  Company Number: US-ASTRAZENECA-2021A628529

PATIENT
  Age: 26058 Day
  Sex: Male
  Weight: 104.3 kg

DRUGS (20)
  1. CALQUENCE [Suspect]
     Active Substance: ACALABRUTINIB
     Indication: CHRONIC LYMPHOCYTIC LEUKAEMIA
     Route: 048
     Dates: start: 20210428, end: 20210604
  2. ATORVASTATIN [Concomitant]
     Active Substance: ATORVASTATIN
  3. MAGNESIUM [Concomitant]
     Active Substance: MAGNESIUM
  4. LOSARTAN. [Concomitant]
     Active Substance: LOSARTAN
  5. VITAMIN D3 [Concomitant]
     Active Substance: CHOLECALCIFEROL
  6. ACYCLOVIR. [Concomitant]
     Active Substance: ACYCLOVIR
  7. ADVIL [Concomitant]
     Active Substance: IBUPROFEN
  8. ASPIRIN. [Concomitant]
     Active Substance: ASPIRIN
  9. BUMETANIDE. [Concomitant]
     Active Substance: BUMETANIDE
  10. COD LIVER OIL [Concomitant]
     Active Substance: COD LIVER OIL
  11. POTASSIUM CHLORIDE. [Concomitant]
     Active Substance: POTASSIUM CHLORIDE
  12. SODIUM CHLORIDE. [Concomitant]
     Active Substance: SODIUM CHLORIDE
  13. TYLENOL [Concomitant]
     Active Substance: ACETAMINOPHEN
  14. VITAMIN C [Concomitant]
     Active Substance: ASCORBIC ACID
  15. FLUTICASONE. [Concomitant]
     Active Substance: FLUTICASONE
  16. MIRALAX [Concomitant]
     Active Substance: POLYETHYLENE GLYCOL 3350
  17. MULTIVITAMINS [Concomitant]
     Active Substance: VITAMINS
  18. ZINC. [Concomitant]
     Active Substance: ZINC
  19. ALLOPURINOL. [Concomitant]
     Active Substance: ALLOPURINOL
  20. LACTOBACILLUS [Concomitant]
     Active Substance: LACTOBACILLUS ACIDOPHILUS

REACTIONS (1)
  - Death [Fatal]

NARRATIVE: CASE EVENT DATE: 20210608
